FAERS Safety Report 21343288 (Version 1)
Quarter: 2022Q3

REPORT INFORMATION
  Report Type: Spontaneous
  Country: US (occurrence: None)
  Receive Date: 20220916
  Receipt Date: 20220916
  Transmission Date: 20221026
  Serious: Yes (unspecified)
  Sender: FDA-Public Use
  Company Number: None

PATIENT
  Age: 55 Year
  Sex: Male
  Weight: 163.7 kg

DRUGS (2)
  1. GAZYVA [Suspect]
     Active Substance: OBINUTUZUMAB
     Indication: Hepatitis C
     Dosage: FREQUENCY : ONCE;?
     Route: 041
     Dates: start: 20220915, end: 20220915
  2. Meperidine 12.5 mg [Concomitant]
     Dates: start: 20220915, end: 20220915

REACTIONS (1)
  - Chills [None]

NARRATIVE: CASE EVENT DATE: 20220915
